FAERS Safety Report 7490141-7 (Version None)
Quarter: 2011Q2

REPORT INFORMATION
  Report Type: 
  Country: None (occurrence: None)
  Receive Date: 20110512
  Receipt Date: 20110422
  Transmission Date: 20111010
  Serious: Yes (Other)
  Sender: FDA-Public Use
  Company Number: 201110530

PATIENT
  Age: 46 Year
  Sex: Female

DRUGS (1)
  1. BACLOFEN [Suspect]
     Indication: MUSCLE SPASTICITY
     Dosage: DAILY, INTRATHECAL
     Route: 037

REACTIONS (1)
  - INTESTINAL OBSTRUCTION [None]
